FAERS Safety Report 25779708 (Version 1)
Quarter: 2025Q3

REPORT INFORMATION
  Report Type: Spontaneous
  Country: US (occurrence: US)
  Receive Date: 20250909
  Receipt Date: 20250909
  Transmission Date: 20251021
  Serious: Yes (Other)
  Sender: JOHNSON AND JOHNSON
  Company Number: US-JNJFOC-20250910027

PATIENT
  Age: 48 Year
  Sex: Male

DRUGS (4)
  1. CABENUVA [Suspect]
     Active Substance: CABOTEGRAVIR\RILPIVIRINE
     Indication: HIV infection
     Route: 065
  2. CABENUVA [Suspect]
     Active Substance: CABOTEGRAVIR\RILPIVIRINE
     Indication: HIV infection
     Route: 065
  3. DOLUTEGRAVIR [Concomitant]
     Active Substance: DOLUTEGRAVIR
     Indication: HIV infection
  4. RILPIVIRINE [Concomitant]
     Active Substance: RILPIVIRINE
     Indication: HIV infection

REACTIONS (4)
  - Virologic failure [Unknown]
  - Pathogen resistance [Unknown]
  - Viral mutation identified [Unknown]
  - Wrong technique in device usage process [Unknown]
